FAERS Safety Report 5245153-0 (Version None)
Quarter: 2007Q1

REPORT INFORMATION
  Report Type: 
  Country: None (occurrence: None)
  Receive Date: 20070223
  Receipt Date: 20070216
  Transmission Date: 20070707
  Serious: Yes (Hospitalization)
  Sender: FDA-Public Use
  Company Number: IL-ROCHE-445004

PATIENT
  Age: 32 Year
  Sex: Male
  Weight: 80 kg

DRUGS (10)
  1. CAPECITABINE [Suspect]
     Dosage: AS PER PROTOCOL. GIVEN FOR 14 DAYS OUT OF A THREE-WEEK-CYCLE.
     Route: 048
     Dates: start: 20060426, end: 20060718
  2. CAPECITABINE [Suspect]
     Dosage: AS PER PROTOCOL. GIVEN FOR 14 DAYS OUT OF A THREE-WEEK-CYCLE.
     Route: 048
     Dates: start: 20060221, end: 20060417
  3. BEVACIZUMAB [Suspect]
     Dosage: DOSAGE FORM REPORTED AS INFUSION.
     Route: 042
     Dates: start: 20060221
  4. OXALIPLATIN [Suspect]
     Dosage: FORM REPORTED AS INFUSION.
     Route: 042
     Dates: start: 20060221, end: 20060718
  5. IBUPROFEN [Concomitant]
     Dates: start: 20060415
  6. SODIUM CHLORIDE [Concomitant]
     Dosage: REPORTED AS ^NACL 0.9% + 3 GR KCL^.
     Route: 042
     Dates: start: 20060417, end: 20060417
  7. POTASSIUM CHLORIDE [Concomitant]
     Dosage: REPORTED AS ^1/3 STA. + 3 GR KCL^.
     Route: 042
     Dates: start: 20060418, end: 20060418
  8. PRAMIN [Concomitant]
     Route: 042
     Dates: start: 20060417, end: 20060417
  9. TRAMADOL HCL [Concomitant]
     Route: 042
     Dates: start: 20060417, end: 20060417
  10. VOLTAREN [Concomitant]
     Route: 030
     Dates: start: 20060417

REACTIONS (5)
  - BLOOD AMYLASE INCREASED [None]
  - BLOOD POTASSIUM INCREASED [None]
  - BLOOD SODIUM DECREASED [None]
  - SMALL INTESTINAL OBSTRUCTION [None]
  - WHITE BLOOD CELL COUNT INCREASED [None]
